FAERS Safety Report 8076683-4 (Version None)
Quarter: 2012Q1

REPORT INFORMATION
  Report Type: 
  Country: None (occurrence: None)
  Receive Date: 20120127
  Receipt Date: 20120118
  Transmission Date: 20120608
  Serious: Yes (Hospitalization, Disabling)
  Sender: FDA-Public Use
  Company Number: US-BAYER-2011-058317

PATIENT
  Age: 17 Year
  Sex: Female

DRUGS (7)
  1. NASONEX [Concomitant]
  2. YAZ [Suspect]
     Indication: PREMENSTRUAL SYNDROME
     Dosage: UNK
     Dates: start: 20090108, end: 20090528
  3. LEVORA 0.15/30-21 [Concomitant]
     Dosage: UNK
     Dates: start: 20100101
  4. CELEXA [Concomitant]
     Indication: DEPRESSION
  5. MOTRIN [Concomitant]
     Dosage: UNK UNK, PRN
     Dates: start: 20070101
  6. SERTRALINE HYDROCHLORIDE [Concomitant]
     Dosage: UNK
     Dates: start: 20100101
  7. ANTIBIOTICS [Concomitant]
     Dosage: UNK UNK, PRN
     Dates: start: 20000101

REACTIONS (9)
  - NAUSEA [None]
  - ANXIETY [None]
  - ANHEDONIA [None]
  - GASTROINTESTINAL DISORDER [None]
  - VOMITING [None]
  - ABDOMINAL PAIN [None]
  - GALLBLADDER DISORDER [None]
  - CHOLECYSTITIS CHRONIC [None]
  - PAIN [None]
